FAERS Safety Report 11220240 (Version 2)
Quarter: 2015Q3

REPORT INFORMATION
  Report Type: Report from Study
  Country: US (occurrence: US)
  Receive Date: 20150625
  Receipt Date: 20150723
  Transmission Date: 20151125
  Serious: Yes (Death)
  Sender: FDA-Public Use
  Company Number: US-EXELIXIS-CABO-15005460

PATIENT
  Age: 58 Year
  Sex: Female

DRUGS (7)
  1. LEVOTHYROXINE. [Concomitant]
     Active Substance: LEVOTHYROXINE
  2. LEVAQUIN [Concomitant]
     Active Substance: LEVOFLOXACIN
  3. CABOZANTINIB [Suspect]
     Active Substance: CABOZANTINIB
     Indication: THYROID CANCER
     Dosage: 140 MG, QD
     Route: 048
     Dates: start: 20150501, end: 201506
  4. OXYCODONE [Concomitant]
     Active Substance: OXYCODONE
  5. VITAMIN D [Concomitant]
     Active Substance: CHOLECALCIFEROL
  6. ZOFRAN [Concomitant]
     Active Substance: ONDANSETRON HYDROCHLORIDE
  7. VITAMIN C [Concomitant]
     Active Substance: ASCORBIC ACID

REACTIONS (9)
  - Weight decreased [Not Recovered/Not Resolved]
  - Death [Fatal]
  - Dysphagia [Unknown]
  - Viral infection [Unknown]
  - Dyspnoea [Not Recovered/Not Resolved]
  - Productive cough [Unknown]
  - Arthralgia [Unknown]
  - Joint swelling [Unknown]
  - Dysphonia [Unknown]

NARRATIVE: CASE EVENT DATE: 20150624
